FAERS Safety Report 23369851 (Version 1)
Quarter: 2024Q1

REPORT INFORMATION
  Report Type: Spontaneous
  Country: IL (occurrence: IL)
  Receive Date: 20240105
  Receipt Date: 20240105
  Transmission Date: 20240409
  Serious: Yes (Other)
  Sender: FDA-Public Use
  Company Number: IL-002147023-NVSC2023IL275369

PATIENT

DRUGS (4)
  1. RUXOLITINIB [Suspect]
     Active Substance: RUXOLITINIB
     Indication: Product used for unknown indication
     Dosage: UNK
     Route: 065
     Dates: start: 201202, end: 201502
  2. RUXOLITINIB [Suspect]
     Active Substance: RUXOLITINIB
     Dosage: UNK
     Route: 065
     Dates: start: 201704
  3. ORGARAN [Concomitant]
     Active Substance: DANAPAROID SODIUM
     Indication: Coagulopathy
     Dosage: UNK
     Route: 065
     Dates: start: 200212
  4. ARIXTRA [Concomitant]
     Active Substance: FONDAPARINUX SODIUM
     Indication: Coagulopathy
     Dosage: UNK
     Route: 065
     Dates: start: 200212

REACTIONS (8)
  - Blood lactate dehydrogenase increased [Recovering/Resolving]
  - White blood cell count increased [Recovered/Resolved]
  - Hepatic cirrhosis [Unknown]
  - Neutrophil count decreased [Unknown]
  - Haemoglobin decreased [Recovered/Resolved]
  - Platelet count decreased [Not Recovered/Not Resolved]
  - White blood cell count decreased [Recovered/Resolved]
  - Reticulin increased [Unknown]

NARRATIVE: CASE EVENT DATE: 20131201
